APPROVED DRUG PRODUCT: OXYCODONE HYDROCHLORIDE
Active Ingredient: OXYCODONE HYDROCHLORIDE
Strength: 20MG
Dosage Form/Route: TABLET;ORAL
Application: A077712 | Product #005 | TE Code: AB
Applicant: STRIDES PHARMA INTERNATIONAL AG
Approved: Apr 13, 2015 | RLD: No | RS: No | Type: RX